FAERS Safety Report 7039134-4 (Version None)
Quarter: 2010Q4

REPORT INFORMATION
  Report Type: 
  Country: None (occurrence: None)
  Receive Date: 20101007
  Receipt Date: 20101007
  Transmission Date: 20110411
  Serious: Yes (Other)
  Sender: FDA-Public Use
  Company Number: None

PATIENT
  Age: 38 Year
  Sex: Female
  Weight: 61.2356 kg

DRUGS (1)
  1. NEURONTIN [Suspect]
     Dosage: 350MG 2 X PER DAY PO
     Route: 048
     Dates: start: 20040715, end: 20050915

REACTIONS (1)
  - AMNESIA [None]
